FAERS Safety Report 16990830 (Version 1)
Quarter: 2019Q4

REPORT INFORMATION
  Report Type: Spontaneous
  Country: TW (occurrence: TW)
  Receive Date: 20191104
  Receipt Date: 20191104
  Transmission Date: 20200122
  Serious: Yes (Death)
  Sender: FDA-Public Use
  Company Number: TW-PFIZER INC-2018515533

PATIENT
  Age: 46 Year
  Sex: Male

DRUGS (2)
  1. SUTENT [Suspect]
     Active Substance: SUNITINIB MALATE
     Dosage: UNK
  2. SUTENT [Suspect]
     Active Substance: SUNITINIB MALATE
     Indication: RENAL CELL CARCINOMA
     Dosage: 50 MG, CYCLIC(QD, TWO WEEKS ON AND ONE WEEK OFF)
     Route: 048
     Dates: start: 20181102, end: 201901

REACTIONS (7)
  - Hyperglycaemia [Fatal]
  - Decreased appetite [Recovered/Resolved]
  - Vomiting [Recovered/Resolved]
  - Palmar-plantar erythrodysaesthesia syndrome [Recovering/Resolving]
  - Mouth ulceration [Recovering/Resolving]
  - Blood pressure increased [Recovering/Resolving]
  - Hypogeusia [Recovered/Resolved]

NARRATIVE: CASE EVENT DATE: 2018
